FAERS Safety Report 8299019 (Version 2)
Quarter: 2013Q4

REPORT INFORMATION
  Report Type: Spontaneous
  Country: US (occurrence: US)
  Receive Date: 20111219
  Receipt Date: 20131227
  Transmission Date: 20140711
  Serious: No
  Sender: FDA-Public Use
  Company Number: US-ASTRAZENECA-2011SE47491

PATIENT
  Age: 74 Year
  Sex: Female
  Weight: 61.2 kg

DRUGS (12)
  1. CRESTOR [Suspect]
     Indication: BLOOD CHOLESTEROL INCREASED
     Route: 048
     Dates: start: 2008, end: 20131124
  2. NEXIUM [Suspect]
     Indication: GASTROOESOPHAGEAL REFLUX DISEASE
     Route: 048
  3. NEXIUM [Suspect]
     Indication: GASTROOESOPHAGEAL REFLUX DISEASE
     Route: 048
  4. LOSARTAN [Concomitant]
     Indication: HYPERTENSION
  5. VITAMIN D [Concomitant]
     Indication: FUNCTIONAL GASTROINTESTINAL DISORDER
  6. VITAMIN D [Concomitant]
     Indication: BREAST DISORDER
  7. OMEGA 3 [Concomitant]
     Indication: BLOOD CHOLESTEROL ABNORMAL
  8. AMLODIPINE [Concomitant]
     Indication: BLOOD PRESSURE ABNORMAL
  9. DIAZEPAM [Concomitant]
     Indication: BACK PAIN
  10. DIAZEPAM [Concomitant]
     Indication: PROCTALGIA
  11. TYLENOL PM [Concomitant]
     Indication: SLEEP DISORDER
  12. TYLENOL ARTHRITIS [Concomitant]
     Indication: BACK DISORDER

REACTIONS (18)
  - Muscle twitching [Unknown]
  - Blood pressure decreased [Recovered/Resolved]
  - Erythema [Recovered/Resolved]
  - Oral dysaesthesia [Recovered/Resolved]
  - Hypertension [Recovered/Resolved]
  - Eye swelling [Unknown]
  - Local swelling [Unknown]
  - Abasia [Unknown]
  - Muscle spasms [Not Recovered/Not Resolved]
  - Dizziness [Unknown]
  - Hypersensitivity [Unknown]
  - Muscle spasms [Unknown]
  - Rash [Recovered/Resolved]
  - Pruritus [Recovered/Resolved]
  - Dizziness [Unknown]
  - Myalgia [Unknown]
  - Fatigue [Unknown]
  - Intentional drug misuse [Unknown]
